FAERS Safety Report 16035710 (Version 1)
Quarter: 2019Q1

REPORT INFORMATION
  Report Type: Spontaneous
  Country: PL (occurrence: PL)
  Receive Date: 20190305
  Receipt Date: 20190305
  Transmission Date: 20190418
  Serious: Yes (Hospitalization)
  Sender: FDA-Public Use
  Company Number: PL-MYLANLABS-2019M1018785

PATIENT
  Age: 52 Year
  Sex: Female

DRUGS (10)
  1. PANTOPRAZOLE [Concomitant]
     Active Substance: PANTOPRAZOLE
     Indication: PROPHYLAXIS
     Dosage: UNK
  2. PARITAPREVIR [Interacting]
     Active Substance: PARITAPREVIR
     Indication: CHRONIC HEPATITIS C
     Dosage: UNK
     Dates: start: 201512
  3. AMLODIPINE [Concomitant]
     Active Substance: AMLODIPINE BESYLATE
     Indication: HYPERTENSION
     Dosage: UNK
  4. RITONAVIR. [Interacting]
     Active Substance: RITONAVIR
     Indication: CHRONIC HEPATITIS C
     Dosage: UNK
     Dates: start: 201512
  5. MYCOPHENOLATE MOFETIL. [Concomitant]
     Active Substance: MYCOPHENOLATE MOFETIL
     Indication: IMMUNOSUPPRESSANT DRUG THERAPY
     Dosage: UNK
  6. DASABUVIR [Concomitant]
     Active Substance: DASABUVIR
     Indication: CHRONIC HEPATITIS C
     Dosage: UNK
     Dates: start: 201512
  7. SIMVASTATIN. [Suspect]
     Active Substance: SIMVASTATIN
     Indication: ARTERIOSCLEROSIS
     Dosage: 40 MILLIGRAM, QD
     Route: 048
  8. PREDNISONE. [Concomitant]
     Active Substance: PREDNISONE
     Indication: IMMUNOSUPPRESSANT DRUG THERAPY
     Dosage: UNK
  9. PROPAFENONE. [Concomitant]
     Active Substance: PROPAFENONE
     Indication: VENTRICULAR ARRHYTHMIA
     Dosage: UNK
  10. CICLOSPORIN [Concomitant]
     Active Substance: CYCLOSPORINE
     Indication: IMMUNOSUPPRESSANT DRUG THERAPY
     Dosage: UNK

REACTIONS (2)
  - Drug interaction [Recovering/Resolving]
  - Rhabdomyolysis [Recovering/Resolving]

NARRATIVE: CASE EVENT DATE: 201601
